FAERS Safety Report 7973558-3 (Version None)
Quarter: 2011Q4

REPORT INFORMATION
  Report Type: 
  Country: None (occurrence: None)
  Receive Date: 20111213
  Receipt Date: 20111130
  Transmission Date: 20120403
  Serious: Yes (Hospitalization)
  Sender: FDA-Public Use
  Company Number: US-SHIRE-ALL1-2011-04728

PATIENT
  Age: 8 Year
  Sex: Male

DRUGS (5)
  1. INTUNIV [Suspect]
     Dosage: 3 MG, 1X/DAY:QD
     Route: 048
     Dates: start: 20111101
  2. INTUNIV [Suspect]
     Dosage: 2 MG, 1X/DAY:QD
     Route: 048
  3. INTUNIV [Suspect]
     Dosage: 1 MG, 1X/DAY:QD
     Route: 048
  4. INTUNIV [Suspect]
     Indication: ATTENTION DEFICIT/HYPERACTIVITY DISORDER
     Dosage: 3 MG, 1X/DAY:QD
     Route: 048
     Dates: end: 20111101
  5. INTUNIV [Suspect]
     Dosage: 4 MG, 1X/DAY:QD
     Route: 048
     Dates: start: 20111101, end: 20111101

REACTIONS (5)
  - VENTRICULAR TACHYCARDIA [None]
  - DRUG EFFECT DECREASED [None]
  - BRADYCARDIA [None]
  - ATRIOVENTRICULAR BLOCK [None]
  - SEDATION [None]
